FAERS Safety Report 6933692-3 (Version None)
Quarter: 2010Q3

REPORT INFORMATION
  Report Type: 
  Country: None (occurrence: None)
  Receive Date: 20100820
  Receipt Date: 20100805
  Transmission Date: 20110219
  Serious: Yes (Other)
  Sender: FDA-Public Use
  Company Number: US-BAYER-200936641NA

PATIENT
  Age: 79 Year
  Sex: Male
  Weight: 69 kg

DRUGS (48)
  1. MAGNEVIST [Suspect]
     Indication: NUCLEAR MAGNETIC RESONANCE IMAGING
     Dates: start: 20070517, end: 20070517
  2. OMNISCAN [Suspect]
     Indication: NUCLEAR MAGNETIC RESONANCE IMAGING
     Route: 042
     Dates: start: 20060503, end: 20060503
  3. OMNISCAN [Suspect]
     Dates: start: 20020313, end: 20020313
  4. OMNISCAN [Suspect]
     Dates: start: 20061129, end: 20061129
  5. OMNISCAN [Suspect]
     Dosage: TOTAL DAILY DOSE: 35 ML
     Route: 042
     Dates: start: 20060727, end: 20060727
  6. OMNISCAN [Suspect]
     Dates: start: 20061127, end: 20061127
  7. OMNISCAN [Suspect]
     Dates: start: 20061009, end: 20061009
  8. OMNISCAN [Suspect]
     Dates: start: 20061204, end: 20061204
  9. OMNISCAN [Suspect]
     Dates: start: 20060104, end: 20060104
  10. OMNISCAN [Suspect]
     Dates: start: 20051102, end: 20051102
  11. OMNISCAN [Suspect]
     Dates: start: 20050923, end: 20050923
  12. OPTIMARK [Suspect]
     Indication: NUCLEAR MAGNETIC RESONANCE IMAGING
     Dates: start: 20020313, end: 20020313
  13. MULTIHANCE [Suspect]
     Indication: NUCLEAR MAGNETIC RESONANCE IMAGING
  14. PROHANCE [Suspect]
     Indication: NUCLEAR MAGNETIC RESONANCE IMAGING
  15. UNSPECIFIED GBCA [Suspect]
     Indication: ANGIOGRAM
     Dates: start: 20060503, end: 20060503
  16. UNSPECIFIED GBCA [Suspect]
     Dates: start: 20061009, end: 20061009
  17. UNSPECIFIED GBCA [Suspect]
     Dosage: 20 MLGADOLINIUM AND 10 ML OMNIPAQUE
     Dates: start: 20061127, end: 20061127
  18. UNSPECIFIED GBCA [Suspect]
     Dates: start: 20051102, end: 20051102
  19. OMNIPAQUE 140 [Suspect]
     Indication: PRODUCT USED FOR UNKNOWN INDICATION
     Dosage: 20 MLGADOLINIUM AND 10 ML OMNIPAQUE
     Dates: start: 20051102, end: 20051102
  20. OMNIPAQUE 140 [Suspect]
     Dates: start: 20061101, end: 20061101
  21. LISINOPRIL [Concomitant]
     Indication: HYPERTENSION
  22. METOPROLOL TARTRATE [Concomitant]
  23. HYDROCHLOROTHIAZIDE [Concomitant]
     Dates: start: 20010101, end: 20020101
  24. SIMVASTATIN [Concomitant]
     Indication: BLOOD CHOLESTEROL INCREASED
  25. SPIRONOLACTONE [Concomitant]
  26. COREG [Concomitant]
     Dates: start: 20060101, end: 20070101
  27. PLAVIX [Concomitant]
     Dates: start: 20060101
  28. FUROSEMIDE [Concomitant]
     Indication: CARDIAC FAILURE CONGESTIVE
  29. AMITRIPTYLINE HYDROCHLORIDE [Concomitant]
  30. ISOSORBIDE [Concomitant]
     Indication: PAIN PROPHYLAXIS
  31. RENAGEL [Concomitant]
     Indication: PROPHYLAXIS
  32. RENAL CAPS [Concomitant]
  33. PROTONIX [Concomitant]
  34. FOSAMAX [Concomitant]
  35. ALBUTEROL [Concomitant]
  36. CEPHALEXIN [Concomitant]
  37. EPOGEN [Concomitant]
  38. OMNIPAQUE 140 [Concomitant]
     Indication: ANGIOGRAM
  39. FELODIPINE [Concomitant]
     Dates: start: 20050101, end: 20060101
  40. CLOPIDOGREL [Concomitant]
     Dates: start: 20060101, end: 20070101
  41. CARVEDILOL [Concomitant]
     Dates: start: 20070101, end: 20090101
  42. HYDRALAZINE [Concomitant]
  43. ASPIRIN [Concomitant]
  44. CILOSTAZOL [Concomitant]
  45. POTASSIUM CHLORIDE [Concomitant]
  46. NORVASC [Concomitant]
  47. TRIAMTERENE [Concomitant]
  48. PLENDIL [Concomitant]

REACTIONS (21)
  - DRY SKIN [None]
  - JOINT RANGE OF MOTION DECREASED [None]
  - LICHENIFICATION [None]
  - MOTOR DYSFUNCTION [None]
  - MUSCULOSKELETAL STIFFNESS [None]
  - NEPHROGENIC SYSTEMIC FIBROSIS [None]
  - OEDEMA [None]
  - OEDEMA PERIPHERAL [None]
  - PAIN [None]
  - PEAU D'ORANGE [None]
  - PIGMENTATION DISORDER [None]
  - PULMONARY FUNCTION TEST DECREASED [None]
  - RASH [None]
  - RASH PAPULAR [None]
  - SKIN DISORDER [None]
  - SKIN EXFOLIATION [None]
  - SKIN FIBROSIS [None]
  - SKIN HYPERTROPHY [None]
  - SKIN INDURATION [None]
  - SKIN TIGHTNESS [None]
  - SKIN ULCER [None]
